FAERS Safety Report 10170034 (Version 1)
Quarter: 2014Q2

REPORT INFORMATION
  Report Type: Spontaneous
  Country: GB (occurrence: GB)
  Receive Date: 20140513
  Receipt Date: 20140513
  Transmission Date: 20141212
  Serious: Yes (Life-Threatening, Hospitalization)
  Sender: FDA-Public Use
  Company Number: GB-TEVA-480050ISR

PATIENT
  Age: 4 Decade
  Sex: Female
  Weight: 82 kg

DRUGS (2)
  1. OLANZAPINE [Suspect]
     Indication: BIPOLAR DISORDER
  2. FLUOXETIN [Concomitant]

REACTIONS (6)
  - Diverticulum [Recovered/Resolved with Sequelae]
  - Dehydration [Unknown]
  - Pyrexia [Unknown]
  - Nausea [Unknown]
  - Intestinal perforation [Recovered/Resolved]
  - Abdominal discomfort [Unknown]
